FAERS Safety Report 22155110 (Version 2)
Quarter: 2023Q2

REPORT INFORMATION
  Report Type: Spontaneous
  Country: NO (occurrence: None)
  Receive Date: 20230330
  Receipt Date: 20230401
  Transmission Date: 20230722
  Serious: Yes (Other)
  Sender: FDA-Public Use
  Company Number: NO-ROCHE-3317801

PATIENT
  Age: 71 Year
  Sex: Male

DRUGS (16)
  1. POLIVY [Suspect]
     Active Substance: POLATUZUMAB VEDOTIN-PIIQ
     Indication: Waldenstrom^s macroglobulinaemia
     Route: 065
     Dates: start: 20220715, end: 20220919
  2. RITUXIMAB [Suspect]
     Active Substance: RITUXIMAB
     Indication: Waldenstrom^s macroglobulinaemia
     Route: 065
     Dates: start: 20091201, end: 20100506
  3. RITUXIMAB [Suspect]
     Active Substance: RITUXIMAB
     Route: 065
     Dates: start: 20200602, end: 20200904
  4. RITUXIMAB [Suspect]
     Active Substance: RITUXIMAB
     Route: 065
     Dates: start: 20211203, end: 20220222
  5. RITUXIMAB [Suspect]
     Active Substance: RITUXIMAB
     Route: 065
     Dates: start: 20220715, end: 20220919
  6. CYCLOPHOSPHAMIDE [Suspect]
     Active Substance: CYCLOPHOSPHAMIDE
     Indication: Waldenstrom^s macroglobulinaemia
     Route: 065
     Dates: start: 20091201, end: 20100506
  7. CYCLOPHOSPHAMIDE [Suspect]
     Active Substance: CYCLOPHOSPHAMIDE
     Route: 065
     Dates: start: 20200602, end: 20200904
  8. DEXAMETHASONE [Suspect]
     Active Substance: DEXAMETHASONE
     Indication: Waldenstrom^s macroglobulinaemia
     Route: 065
     Dates: start: 20091201, end: 20100506
  9. DOXORUBICIN [Suspect]
     Active Substance: DOXORUBICIN
     Indication: Waldenstrom^s macroglobulinaemia
     Route: 065
     Dates: start: 20200602, end: 20200904
  10. VINCRISTINE [Suspect]
     Active Substance: VINCRISTINE
     Indication: Waldenstrom^s macroglobulinaemia
     Route: 065
     Dates: start: 20200602, end: 20200904
  11. PREDNISONE [Suspect]
     Active Substance: PREDNISONE
     Indication: Waldenstrom^s macroglobulinaemia
     Route: 065
     Dates: start: 20200602, end: 20200904
  12. IFOSFAMIDE [Suspect]
     Active Substance: IFOSFAMIDE
     Indication: Waldenstrom^s macroglobulinaemia
     Route: 065
     Dates: start: 20211203, end: 20220222
  13. CARBOPLATIN [Suspect]
     Active Substance: CARBOPLATIN
     Indication: Waldenstrom^s macroglobulinaemia
     Route: 065
     Dates: start: 20211203, end: 20220222
  14. ETOPOSIDE [Suspect]
     Active Substance: ETOPOSIDE
     Indication: Waldenstrom^s macroglobulinaemia
     Route: 065
     Dates: start: 20211203, end: 20220222
  15. METHOTREXATE [Suspect]
     Active Substance: METHOTREXATE
     Indication: Waldenstrom^s macroglobulinaemia
     Route: 065
     Dates: start: 20200602, end: 20200904
  16. BENDAMUSTINE [Suspect]
     Active Substance: BENDAMUSTINE
     Indication: Waldenstrom^s macroglobulinaemia
     Route: 065
     Dates: start: 20220715, end: 20220919

REACTIONS (2)
  - Disease progression [Unknown]
  - Blood lactate dehydrogenase increased [Unknown]
